FAERS Safety Report 21538883 (Version 1)
Quarter: 2022Q4

REPORT INFORMATION
  Report Type: Spontaneous
  Country: US (occurrence: US)
  Receive Date: 20221102
  Receipt Date: 20221102
  Transmission Date: 20230112
  Serious: No
  Sender: FDA-Public Use
  Company Number: US-ABBVIE-4183428

PATIENT
  Sex: Male

DRUGS (1)
  1. IMBRUVICA [Suspect]
     Active Substance: IBRUTINIB
     Indication: Product used for unknown indication
     Dosage: 140 MG CAPS TAKE 2 CAPSULES BY MOUTH ONCE DAILY ON MONDAY,?WEDNESDAY AND FRIDAY, THEN TAKE 1 CAPS...
     Route: 048

REACTIONS (1)
  - Skin ulcer [Unknown]
